FAERS Safety Report 25149651 (Version 2)
Quarter: 2025Q2

REPORT INFORMATION
  Report Type: Other
  Country: US (occurrence: US)
  Receive Date: 20250402
  Receipt Date: 20250425
  Transmission Date: 20250716
  Serious: Yes (Hospitalization)
  Sender: TRAVERE THERAPEUTICS
  Company Number: US-TRAVERE-2025TVT00427

PATIENT
  Age: 63 Year
  Sex: Male
  Weight: 140.61 kg

DRUGS (20)
  1. FILSPARI [Suspect]
     Active Substance: SPARSENTAN
     Indication: Chronic kidney disease
     Route: 048
     Dates: start: 20241009
  2. FILSPARI [Suspect]
     Active Substance: SPARSENTAN
     Indication: Proteinuria
  3. FILSPARI [Suspect]
     Active Substance: SPARSENTAN
     Indication: IgA nephropathy
  4. FILSPARI [Suspect]
     Active Substance: SPARSENTAN
     Indication: Anaemia
  5. NORVASC [Concomitant]
     Active Substance: AMLODIPINE BESYLATE
  6. HYDROCHLOROTHIAZIDE [Concomitant]
     Active Substance: HYDROCHLOROTHIAZIDE
  7. JARDIANCE [Concomitant]
     Active Substance: EMPAGLIFLOZIN
  8. SODIUM BICARBONATE [Concomitant]
     Active Substance: SODIUM BICARBONATE
  9. ZYLOPRIM [Concomitant]
     Active Substance: ALLOPURINOL
  10. AUGMENTIN [Concomitant]
     Active Substance: AMOXICILLIN\CLAVULANATE POTASSIUM
     Dates: start: 20250227, end: 20250410
  11. LIPITOR [Concomitant]
     Active Substance: ATORVASTATIN CALCIUM
  12. CIPRO [Concomitant]
     Active Substance: CIPROFLOXACIN HYDROCHLORIDE
     Dates: start: 20250227, end: 20250410
  13. VIBRAMYCIN [Concomitant]
     Active Substance: DOXYCYCLINE
     Dates: start: 20250224, end: 20250407
  14. FERROUS SULFATE [Concomitant]
     Active Substance: FERROUS SULFATE
  15. PROZAC [Concomitant]
     Active Substance: FLUOXETINE HYDROCHLORIDE
  16. NEURONTIN [Concomitant]
     Active Substance: GABAPENTIN
  17. CULTURELLE [Concomitant]
     Active Substance: LACTOBACILLUS RHAMNOSUS
  18. CLARITIN [Concomitant]
     Active Substance: LORATADINE
  19. PROTONIX [Concomitant]
     Active Substance: PANTOPRAZOLE SODIUM
  20. CLEARLAX [Concomitant]
     Active Substance: POLYETHYLENE GLYCOL 3350

REACTIONS (4)
  - Limb injury [Unknown]
  - Osteomyelitis [Unknown]
  - Blood creatinine increased [Recovering/Resolving]
  - Glomerular filtration rate decreased [Recovering/Resolving]

NARRATIVE: CASE EVENT DATE: 20241029
